FAERS Safety Report 7644240-7 (Version None)
Quarter: 2011Q3

REPORT INFORMATION
  Report Type: 
  Country: None (occurrence: None)
  Receive Date: 20110729
  Receipt Date: 20110719
  Transmission Date: 20111222
  Serious: Yes (Other)
  Sender: FDA-Public Use
  Company Number: PHHY2011FI05590

PATIENT
  Age: 29 Year
  Sex: Male

DRUGS (2)
  1. CLOZAPINE [Suspect]
     Dosage: 600 MG, UNK
  2. CLOZAPINE [Suspect]
     Dosage: 325 MG, UNK

REACTIONS (3)
  - HEPATIC ENZYME INCREASED [None]
  - ASPARTATE AMINOTRANSFERASE INCREASED [None]
  - HEPATITIS ALCOHOLIC [None]
